FAERS Safety Report 16703782 (Version 1)
Quarter: 2019Q3

REPORT INFORMATION
  Report Type: Spontaneous
  Country: CZ (occurrence: CZ)
  Receive Date: 20190814
  Receipt Date: 20190814
  Transmission Date: 20191004
  Serious: Yes (Other)
  Sender: FDA-Public Use
  Company Number: CZ-BAUSCH-BL-2019-023181

PATIENT
  Age: 42 Year
  Sex: Female

DRUGS (6)
  1. LITHIUM. [Suspect]
     Active Substance: LITHIUM
     Indication: DEPRESSION
     Route: 065
  2. BUPROPION. [Suspect]
     Active Substance: BUPROPION
     Indication: DEPRESSION
     Route: 065
  3. SUCCINYLCHOLINE [Concomitant]
     Active Substance: SUCCINYLCHOLINE
     Indication: MUSCLE RELAXANT THERAPY
     Dates: start: 201805, end: 201812
  4. OLANZAPINE. [Concomitant]
     Active Substance: OLANZAPINE
     Indication: DEPRESSION
  5. FLUOXETINE [Concomitant]
     Active Substance: FLUOXETINE HYDROCHLORIDE
     Indication: DEPRESSION
  6. PROPOFOL. [Concomitant]
     Active Substance: PROPOFOL
     Indication: GENERAL ANAESTHESIA
     Dates: start: 201805, end: 201812

REACTIONS (13)
  - Tongue paralysis [Recovered/Resolved]
  - Electroencephalogram abnormal [Recovered/Resolved]
  - Myoclonic epilepsy [Recovered/Resolved]
  - Eye movement disorder [Recovered/Resolved]
  - Delirium [Recovered/Resolved]
  - Clonic convulsion [Recovered/Resolved]
  - Condition aggravated [Unknown]
  - Gaze palsy [Recovered/Resolved]
  - Nystagmus [Recovered/Resolved]
  - Muscular weakness [Unknown]
  - Postictal paralysis [Recovered/Resolved]
  - Seizure [Recovered/Resolved]
  - Confusional state [Recovered/Resolved]

NARRATIVE: CASE EVENT DATE: 201805
